FAERS Safety Report 9974078 (Version 1)
Quarter: 2014Q1

REPORT INFORMATION
  Report Type: Spontaneous
  Country: CA (occurrence: CA)
  Receive Date: 20140306
  Receipt Date: 20140306
  Transmission Date: 20141002
  Serious: Yes (Other)
  Sender: FDA-Public Use
  Company Number: CA-VIIV HEALTHCARE LIMITED-A1062786A

PATIENT
  Sex: Female

DRUGS (1)
  1. TIVICAY [Suspect]
     Indication: HIV INFECTION
     Route: 065

REACTIONS (1)
  - Neutropenia [Unknown]
